FAERS Safety Report 21587774 (Version 1)
Quarter: 2022Q4

REPORT INFORMATION
  Report Type: Spontaneous
  Country: US (occurrence: US)
  Receive Date: 20221114
  Receipt Date: 20221114
  Transmission Date: 20230113
  Serious: No
  Sender: FDA-Public Use
  Company Number: US-ORGANON-O2211USA000562

PATIENT
  Age: 19 Year
  Sex: Female

DRUGS (1)
  1. NEXPLANON [Suspect]
     Active Substance: ETONOGESTREL
     Dosage: 1 IMPLANT OF 68 MG
     Route: 059
     Dates: start: 20221031, end: 20221031

REACTIONS (6)
  - Device difficult to use [Not Recovered/Not Resolved]
  - Complication of device insertion [Not Recovered/Not Resolved]
  - Poor quality device used [Unknown]
  - Product quality issue [Unknown]
  - Wrong technique in device usage process [Unknown]
  - No adverse event [Unknown]

NARRATIVE: CASE EVENT DATE: 20221031
